FAERS Safety Report 6686787-6 (Version None)
Quarter: 2010Q2

REPORT INFORMATION
  Report Type: 
  Country: None (occurrence: None)
  Receive Date: 20100415
  Receipt Date: 20100331
  Transmission Date: 20101027
  Serious: Yes (Other)
  Sender: FDA-Public Use
  Company Number: 7000051

PATIENT
  Age: 61 Year
  Sex: Female

DRUGS (1)
  1. REBIF [Suspect]
     Indication: MULTIPLE SCLEROSIS
     Dosage: 44 MCG, 3 IN 1 WK, SUBCUTANEOUS
     Route: 058
     Dates: start: 20021003

REACTIONS (6)
  - CONTUSION [None]
  - FACIAL BONES FRACTURE [None]
  - FALL [None]
  - GAIT DISTURBANCE [None]
  - PAIN IN EXTREMITY [None]
  - SMEAR CERVIX ABNORMAL [None]
